FAERS Safety Report 24096138 (Version 1)
Quarter: 2024Q3

REPORT INFORMATION
  Report Type: Spontaneous
  Country: US (occurrence: None)
  Receive Date: 20240715
  Receipt Date: 20240715
  Transmission Date: 20241017
  Serious: Yes (Other)
  Sender: Public
  Company Number: None

PATIENT
  Age: 33 Year
  Sex: Male
  Weight: 103.5 kg

DRUGS (1)
  1. CAPLYTA [Suspect]
     Active Substance: LUMATEPERONE

REACTIONS (6)
  - Insomnia [None]
  - Vomiting [None]
  - Asthenia [None]
  - Pain in extremity [None]
  - Pain in extremity [None]
  - Therapy interrupted [None]

NARRATIVE: CASE EVENT DATE: 20240629
